FAERS Safety Report 20886595 (Version 13)
Quarter: 2024Q2

REPORT INFORMATION
  Report Type: Report from Study
  Country: CN (occurrence: CN)
  Receive Date: 20220527
  Receipt Date: 20240401
  Transmission Date: 20240716
  Serious: Yes (Hospitalization, Other)
  Sender: FDA-Public Use
  Company Number: CN-TAKEDA-2022TUS034750

PATIENT
  Age: 49 Year
  Sex: Male
  Weight: 78 kg

DRUGS (20)
  1. BRENTUXIMAB VEDOTIN [Suspect]
     Active Substance: BRENTUXIMAB VEDOTIN
     Indication: Hodgkin^s disease
     Dosage: 100 MILLIGRAM, Q3WEEKS
     Route: 041
     Dates: start: 20220318
  2. DEXAMETHASONE [Suspect]
     Active Substance: DEXAMETHASONE
     Indication: Lymphoma
     Dosage: 5 MILLIGRAM, QD
     Route: 042
     Dates: start: 20220318, end: 20220319
  3. DEXAMETHASONE [Suspect]
     Active Substance: DEXAMETHASONE
     Indication: Allergy prophylaxis
  4. VINDESINE [Suspect]
     Active Substance: VINDESINE
     Indication: Lymphoma
     Dosage: 4 MILLIGRAM, QD
     Route: 042
     Dates: start: 20220318, end: 20220319
  5. DACARBAZINE [Suspect]
     Active Substance: DACARBAZINE
     Indication: Lymphoma
     Dosage: 0.7 GRAM, QD
     Route: 042
     Dates: start: 20220318, end: 20220319
  6. METHYLCOBALAMIN [Concomitant]
     Active Substance: METHYLCOBALAMIN
     Indication: Prophylaxis
     Dosage: 0.5 MILLIGRAM, BID
     Route: 042
     Dates: start: 20220317, end: 20220320
  7. METHYLCOBALAMIN [Concomitant]
     Active Substance: METHYLCOBALAMIN
     Indication: Central nervous system stimulation
  8. METHYLCOBALAMIN [Concomitant]
     Active Substance: METHYLCOBALAMIN
     Indication: Central nervous system stimulation
  9. ADENOSINE CYCLIC PHOSPHATE MEGLUMINE [Concomitant]
     Active Substance: ADENOSINE CYCLIC PHOSPHATE MEGLUMINE
     Indication: Cardiovascular event prophylaxis
     Dosage: 150 MILLIGRAM, QD
     Route: 042
     Dates: start: 20220316, end: 20220320
  10. PHOSPHOLIPID [Concomitant]
     Active Substance: PHOSPHOLIPID
     Indication: Prophylaxis
     Dosage: 20 MILLILITER, QD
     Route: 042
     Dates: start: 20220316, end: 20220320
  11. OMEPRAZOLE [Concomitant]
     Active Substance: OMEPRAZOLE
     Indication: Gastrointestinal disorder prophylaxis
     Dosage: 40 MILLIGRAM, QD
     Route: 042
     Dates: start: 20220316, end: 20220320
  12. ONDANSETRON HYDROCHLORIDE [Concomitant]
     Active Substance: ONDANSETRON HYDROCHLORIDE
     Indication: Antiemetic supportive care
     Dosage: 16 MILLIGRAM, QD
     Route: 048
     Dates: start: 20220316, end: 20220320
  13. APREPITANT [Concomitant]
     Active Substance: APREPITANT
     Indication: Antiemetic supportive care
     Dosage: UNK UNK, QD
     Route: 048
     Dates: start: 20220316, end: 20220320
  14. COMPOUND BORAX [Concomitant]
     Indication: Infection prophylaxis
     Dosage: 20 MILLILITER, TID
     Route: 065
     Dates: start: 20220316, end: 20220320
  15. LACTULOSE [Concomitant]
     Active Substance: LACTULOSE
     Indication: Constipation prophylaxis
     Dosage: 10 MILLILITER, TID
     Route: 048
     Dates: start: 20220316, end: 20220320
  16. TORSEMIDE [Concomitant]
     Active Substance: TORSEMIDE
     Indication: Allergy prophylaxis
     Dosage: 10 MILLIGRAM, QD
     Route: 042
     Dates: start: 20220317, end: 20220320
  17. UBENIMEX [Concomitant]
     Active Substance: UBENIMEX
     Indication: Immune disorder prophylaxis
     Dosage: 30 MILLIGRAM, QD
     Route: 048
     Dates: start: 20220319, end: 20220321
  18. DOXORUBICIN HYDROCHLORIDE [Concomitant]
     Active Substance: DOXORUBICIN HYDROCHLORIDE
     Indication: Lymphoma
     Dosage: 20 MILLIGRAM, QD
     Route: 042
     Dates: start: 20220317, end: 20220319
  19. OPRELVEKIN [Concomitant]
     Active Substance: OPRELVEKIN
     Indication: Prophylaxis
     Dosage: 3 MILLIGRAM, QD
     Route: 065
     Dates: start: 20220316, end: 20220320
  20. THYMOPENTIN [Concomitant]
     Active Substance: THYMOPENTIN
     Indication: Immune disorder prophylaxis
     Dosage: 20 MILLIGRAM
     Route: 058
     Dates: start: 20220317, end: 20220320

REACTIONS (2)
  - Drug-induced liver injury [Not Recovered/Not Resolved]
  - Off label use [Recovered/Resolved]

NARRATIVE: CASE EVENT DATE: 20220318
